FAERS Safety Report 19907850 (Version 4)
Quarter: 2021Q4

REPORT INFORMATION
  Report Type: Spontaneous
  Country: US (occurrence: US)
  Receive Date: 20210930
  Receipt Date: 20211102
  Transmission Date: 20220303
  Serious: No
  Sender: FDA-Public Use
  Company Number: US-BEH-2021136391

PATIENT
  Age: 72 Year
  Sex: Female
  Weight: 75.3 kg

DRUGS (3)
  1. PRIVIGEN [Suspect]
     Active Substance: HUMAN IMMUNOGLOBULIN G
     Indication: Myositis
     Dosage: UNK
     Route: 042
     Dates: start: 201905
  2. PRIVIGEN [Suspect]
     Active Substance: HUMAN IMMUNOGLOBULIN G
     Indication: Dermatomyositis
     Dosage: UNK
     Route: 042
     Dates: start: 20210924
  3. PRIVIGEN [Suspect]
     Active Substance: HUMAN IMMUNOGLOBULIN G
     Dosage: UNK
     Route: 042
     Dates: start: 2017

REACTIONS (5)
  - Rash [Recovered/Resolved]
  - No adverse event [Unknown]
  - Off label use [Unknown]
  - Skin irritation [Recovered/Resolved]
  - Rash pruritic [Recovered/Resolved]

NARRATIVE: CASE EVENT DATE: 20210924
